FAERS Safety Report 7774257-3 (Version None)
Quarter: 2011Q3

REPORT INFORMATION
  Report Type: 
  Country: None (occurrence: None)
  Receive Date: 20110923
  Receipt Date: 20110916
  Transmission Date: 20111222
  Serious: Yes (Other)
  Sender: FDA-Public Use
  Company Number: US-UCBSA-041509

PATIENT
  Age: 46 Year

DRUGS (1)
  1. CIMZIA [Suspect]
     Dosage: INDUCTION DOSE

REACTIONS (1)
  - SPINAL CORD NEOPLASM [None]
